FAERS Safety Report 10035293 (Version 3)
Quarter: 2014Q2

REPORT INFORMATION
  Report Type: Spontaneous
  Country: US (occurrence: US)
  Receive Date: 20140325
  Receipt Date: 20140408
  Transmission Date: 20141212
  Serious: Yes (Hospitalization)
  Sender: FDA-Public Use
  Company Number: PHEH2014US004711

PATIENT
  Age: 32 Year
  Sex: Female
  Weight: 113.38 kg

DRUGS (6)
  1. GILENYA [Suspect]
     Dosage: UNK UKN, UNK
     Route: 048
     Dates: start: 20140224
  2. CAMRESE [Concomitant]
     Indication: CONTRACEPTION
     Dosage: UNK UKN, DAILY
     Route: 048
  3. KLONOPIN [Concomitant]
     Indication: ANXIETY
     Dosage: 1 MG, QD/BID
     Route: 048
  4. VITAMIN D [Concomitant]
     Indication: VITAMIN D DEFICIENCY
     Dosage: 50000 IU, UNK
     Route: 048
     Dates: start: 20131222
  5. RELPAX [Concomitant]
     Indication: MIGRAINE
     Dosage: UNK UKN, PRN
     Route: 048
  6. ZOLOFT [Concomitant]
     Indication: DEPRESSION
     Dosage: 150 MG, UNK
     Route: 048

REACTIONS (5)
  - Multiple sclerosis relapse [Recovering/Resolving]
  - Asthenia [Unknown]
  - Hypoaesthesia [Unknown]
  - Dyslipidaemia [Recovering/Resolving]
  - Nuclear magnetic resonance imaging abnormal [Unknown]
